FAERS Safety Report 10414954 (Version 1)
Quarter: 2014Q3

REPORT INFORMATION
  Report Type: Spontaneous
  Country: US (occurrence: FR)
  Receive Date: 20140828
  Receipt Date: 20140828
  Transmission Date: 20150326
  Serious: Yes (Life-Threatening, Hospitalization, Other)
  Sender: FDA-Public Use
  Company Number: 2014SP004935

PATIENT
  Age: 59 Year
  Sex: Male

DRUGS (7)
  1. DOLIPRANE [Concomitant]
     Active Substance: ACETAMINOPHEN
  2. CISPLATIN. [Suspect]
     Active Substance: CISPLATIN
     Indication: OESOPHAGEAL ADENOCARCINOMA
     Route: 042
     Dates: start: 20140710
  3. GRANOCYTE [Concomitant]
     Active Substance: LENOGRASTIM
  4. TRAMADOL HYDROCHLORIDE. [Concomitant]
     Active Substance: TRAMADOL HYDROCHLORIDE
  5. FLUOROURACIL. [Suspect]
     Active Substance: FLUOROURACIL
     Indication: OESOPHAGEAL ADENOCARCINOMA
     Route: 042
     Dates: start: 20140710
  6. HERCEPTIN [Suspect]
     Active Substance: TRASTUZUMAB
     Indication: OESOPHAGEAL ADENOCARCINOMA
     Route: 042
     Dates: start: 20140710
  7. EPOETIN ZETA [Concomitant]
     Active Substance: ERYTHROPOIETIN

REACTIONS (6)
  - Tachycardia [Unknown]
  - Peripheral coldness [Unknown]
  - Anuria [Unknown]
  - Sepsis [Recovering/Resolving]
  - Gastric perforation [Recovering/Resolving]
  - Abdominal pain [Unknown]

NARRATIVE: CASE EVENT DATE: 20140721
